FAERS Safety Report 24981443 (Version 1)
Quarter: 2025Q1

REPORT INFORMATION
  Report Type: Spontaneous
  Country: AU (occurrence: AU)
  Receive Date: 20250218
  Receipt Date: 20250218
  Transmission Date: 20250409
  Serious: Yes (Other)
  Sender: FERRING
  Company Number: AU-FERRINGPH-2025FE00724

PATIENT

DRUGS (1)
  1. CERVIDIL [Suspect]
     Active Substance: DINOPROSTONE
     Indication: Product used for unknown indication
     Route: 064

REACTIONS (1)
  - Bradycardia [Unknown]
